FAERS Safety Report 18422466 (Version 1)
Quarter: 2020Q4

REPORT INFORMATION
  Report Type: Spontaneous
  Country: ES (occurrence: ES)
  Receive Date: 20201023
  Receipt Date: 20201023
  Transmission Date: 20210114
  Serious: Yes (Death, Other)
  Sender: FDA-Public Use
  Company Number: ES-B.I. PHARMACEUTICALS,INC./RIDGEFIELD-2020-BI-056325

PATIENT
  Age: 78 Year
  Sex: Male

DRUGS (7)
  1. CETIRIZINA NORMON [Concomitant]
     Indication: PRODUCT USED FOR UNKNOWN INDICATION
     Route: 048
     Dates: start: 20160509, end: 20200923
  2. HYDREA [Concomitant]
     Active Substance: HYDROXYUREA
     Indication: PRODUCT USED FOR UNKNOWN INDICATION
     Route: 048
     Dates: start: 20190314, end: 20200923
  3. PRADAXA [Suspect]
     Active Substance: DABIGATRAN ETEXILATE MESYLATE
     Indication: ATRIAL FIBRILLATION
     Route: 048
     Dates: start: 20130722, end: 20200923
  4. COROPRES [CARVEDILOL] [Concomitant]
     Indication: PRODUCT USED FOR UNKNOWN INDICATION
     Route: 048
     Dates: start: 20160509, end: 20200924
  5. VALSARTAN/HIDROCLOROTIAZIDA KERN PHARMA [Concomitant]
     Indication: HYPERTENSION
     Route: 048
     Dates: start: 20140312, end: 20200924
  6. CARDURAN NEO [Concomitant]
     Active Substance: DOXAZOSIN MESYLATE
     Indication: PRODUCT USED FOR UNKNOWN INDICATION
     Route: 048
     Dates: start: 20160225, end: 20200924
  7. SECALIP [Concomitant]
     Active Substance: FENOFIBRATE
     Indication: HYPERCHOLESTEROLAEMIA
     Route: 048
     Dates: start: 20120831, end: 20200924

REACTIONS (1)
  - Cerebellar haematoma [Fatal]

NARRATIVE: CASE EVENT DATE: 20200924
